FAERS Safety Report 14987949 (Version 1)
Quarter: 2018Q2

REPORT INFORMATION
  Report Type: Spontaneous
  Country: PT (occurrence: PT)
  Receive Date: 20180608
  Receipt Date: 20180608
  Transmission Date: 20180711
  Serious: Yes (Death, Other)
  Sender: FDA-Public Use
  Company Number: PT-MYLANLABS-2018M1039620

PATIENT
  Age: 66 Year
  Sex: Male
  Weight: 67 kg

DRUGS (3)
  1. XALKORI [Interacting]
     Active Substance: CRIZOTINIB
     Indication: LUNG ADENOCARCINOMA STAGE IV
     Dosage: 250 MG, BID
     Route: 048
     Dates: start: 20170317, end: 201707
  2. CARBAMAZEPINE. [Suspect]
     Active Substance: CARBAMAZEPINE
     Indication: EPILEPSY
     Dosage: 200 MG, BID
     Route: 065
  3. XALKORI [Interacting]
     Active Substance: CRIZOTINIB
     Indication: BLOOD ALKALINE PHOSPHATASE INCREASED
     Dosage: UNK

REACTIONS (11)
  - Neoplasm progression [Not Recovered/Not Resolved]
  - Myalgia [Unknown]
  - Drug level decreased [Unknown]
  - Death [Fatal]
  - Therapy non-responder [Unknown]
  - Disease progression [Unknown]
  - Bone pain [Unknown]
  - Blood alkaline phosphatase increased [Unknown]
  - Drug interaction [Not Recovered/Not Resolved]
  - Lung adenocarcinoma [Unknown]
  - Gamma-glutamyltransferase increased [Unknown]

NARRATIVE: CASE EVENT DATE: 20170926
